FAERS Safety Report 9160358 (Version 1)
Quarter: 2013Q1

REPORT INFORMATION
  Report Type: Spontaneous
  Country: FR (occurrence: None)
  Receive Date: 20130219
  Receipt Date: 20130219
  Transmission Date: 20140127
  Serious: Yes (Hospitalization)
  Sender: FDA-Public Use
  Company Number: DSM-2013-00161

PATIENT
  Age: 63 Year
  Sex: Female
  Weight: 66 kg

DRUGS (4)
  1. COOLMETEC [Suspect]
     Indication: HYPERTENSION
     Dosage: 20/12.5 MG (1 IN 1 D), ORAL
     Dates: start: 20081001
  2. LERCAN [Concomitant]
  3. SECTRAL (ACEBUTOLOL HYDROCHLORIDE) [Concomitant]
  4. FENOFIBRATE (FENOFIBRATE) (FENOFIBRATE) [Concomitant]

REACTIONS (4)
  - Hyperglycaemia [None]
  - Polydipsia [None]
  - Polyuria [None]
  - Type 1 diabetes mellitus [None]
